FAERS Safety Report 19172615 (Version 2)
Quarter: 2021Q2

REPORT INFORMATION
  Report Type: Spontaneous
  Country: US (occurrence: US)
  Receive Date: 20210423
  Receipt Date: 20210510
  Transmission Date: 20210717
  Serious: No
  Sender: FDA-Public Use
  Company Number: US-ADVANZ PHARMA-202103002345

PATIENT

DRUGS (1)
  1. DONNATAL [Suspect]
     Active Substance: ATROPINE SULFATE\HYOSCYAMINE SULFATE\PHENOBARBITAL\SCOPOLAMINE HYDROBROMIDE
     Indication: ABDOMINAL RIGIDITY
     Dosage: ABOUT THREE TABLETS A WEEK; STARTED 6 MONTHS AGO

REACTIONS (1)
  - Product dose omission issue [Unknown]
